FAERS Safety Report 18077777 (Version 2)
Quarter: 2020Q4

REPORT INFORMATION
  Report Type: Spontaneous
  Country: CA (occurrence: CA)
  Receive Date: 20200727
  Receipt Date: 20201028
  Transmission Date: 20210113
  Serious: Yes (Hospitalization)
  Sender: FDA-Public Use
  Company Number: CA-009507513-2007CAN008604

PATIENT
  Age: 33 Year
  Sex: Male
  Weight: 108 kg

DRUGS (1)
  1. KEYTRUDA [Suspect]
     Active Substance: PEMBROLIZUMAB
     Indication: DIFFUSE LARGE B-CELL LYMPHOMA REFRACTORY
     Dosage: 200 MILLIGRAM, 1 EVERY 3 WEEKS
     Route: 042

REACTIONS (8)
  - Fatigue [Unknown]
  - General physical health deterioration [Unknown]
  - Dysphagia [Unknown]
  - Depression [Unknown]
  - Cardiac neoplasm unspecified [Unknown]
  - Salivary gland neoplasm [Unknown]
  - Dyspnoea [Unknown]
  - Anxiety [Unknown]
